FAERS Safety Report 11048086 (Version 1)
Quarter: 2015Q2

REPORT INFORMATION
  Report Type: Spontaneous
  Country: SE (occurrence: SE)
  Receive Date: 20150420
  Receipt Date: 20150420
  Transmission Date: 20150821
  Serious: Yes (Other)
  Sender: FDA-Public Use
  Company Number: SE-ELI_LILLY_AND_COMPANY-SE201504001919

PATIENT
  Sex: Female

DRUGS (2)
  1. ZYPREXA [Suspect]
     Active Substance: OLANZAPINE
     Indication: DECREASED APPETITE
     Dosage: 7.5 MG, UNKNOWN
     Route: 065
     Dates: start: 20150226
  2. ATARAX [Concomitant]
     Active Substance: HYDROXYZINE\HYDROXYZINE HYDROCHLORIDE

REACTIONS (3)
  - White blood cell count decreased [Unknown]
  - Off label use [Unknown]
  - Neutrophil count decreased [Unknown]
